FAERS Safety Report 6219227-1 (Version None)
Quarter: 2009Q2

REPORT INFORMATION
  Report Type: 
  Country: None (occurrence: None)
  Receive Date: 20090609
  Receipt Date: 20090604
  Transmission Date: 20091009
  Serious: Yes (Life-Threatening, Hospitalization)
  Sender: FDA-Public Use
  Company Number: FR-BRISTOL-MYERS SQUIBB COMPANY-14614168

PATIENT
  Age: 90 Year
  Sex: Female
  Weight: 54 kg

DRUGS (6)
  1. PRAVADUAL TABS 81 MG/40 MG [Suspect]
     Indication: MYOCARDIAL INFARCTION
     Dosage: 1DF = PRAVASTATIN 40MG + ACETYLSALICYLIC ACID 81MG
     Dates: start: 20090112, end: 20090112
  2. PRAVADUAL TABS 81 MG/40 MG [Suspect]
     Indication: CARDIAC FAILURE
     Dosage: 1DF = PRAVASTATIN 40MG + ACETYLSALICYLIC ACID 81MG
     Dates: start: 20090112, end: 20090112
  3. PLAVIX [Concomitant]
     Indication: MYOCARDIAL INFARCTION
     Dosage: 2 TABS
     Route: 048
     Dates: start: 20081002
  4. PLAVIX [Concomitant]
     Indication: CARDIAC FAILURE
     Dosage: 2 TABS
     Route: 048
     Dates: start: 20081002
  5. BURINEX A [Concomitant]
     Indication: CARDIAC FAILURE
     Dosage: 1 DF=HALF A TABLET (5MG)
     Route: 048
     Dates: start: 20081002
  6. DIAMICRON [Concomitant]
     Indication: DIABETES MELLITUS
     Dosage: 1 DF= HALF A TABLET
     Route: 048
     Dates: start: 20030915

REACTIONS (3)
  - ACUTE CORONARY SYNDROME [None]
  - ARTERIAL THROMBOSIS [None]
  - MYOCARDIAL INFARCTION [None]
